FAERS Safety Report 7366970-7 (Version None)
Quarter: 2011Q1

REPORT INFORMATION
  Report Type: 
  Country: None (occurrence: None)
  Receive Date: 20110322
  Receipt Date: 20110311
  Transmission Date: 20110831
  Serious: Yes (Other)
  Sender: FDA-Public Use
  Company Number: US-PFIZER INC-2004083539

PATIENT
  Sex: Female

DRUGS (4)
  1. NEURONTIN [Suspect]
     Indication: HEADACHE
     Dosage: 300 MG, UNK
     Dates: start: 20000822
  2. NEURONTIN [Suspect]
     Indication: MIGRAINE
     Dosage: 600 MG, UNK
     Dates: start: 20020102
  3. NEURONTIN [Suspect]
     Indication: FACIAL NERVE DISORDER
  4. NEURONTIN [Suspect]
     Indication: EYE PAIN
     Dosage: 300 MG PER DAY
     Dates: start: 20000822, end: 20030122

REACTIONS (12)
  - DEPRESSION [None]
  - DRUG INEFFECTIVE [None]
  - NAUSEA [None]
  - DIZZINESS [None]
  - SUICIDAL IDEATION [None]
  - AMNESIA [None]
  - AGGRESSION [None]
  - HOSTILITY [None]
  - ANXIETY [None]
  - MOOD SWINGS [None]
  - SOMNOLENCE [None]
  - DISTURBANCE IN ATTENTION [None]
